FAERS Safety Report 16331979 (Version 1)
Quarter: 2019Q2

REPORT INFORMATION
  Report Type: Spontaneous
  Country: US (occurrence: US)
  Receive Date: 20190519
  Receipt Date: 20190519
  Transmission Date: 20190711
  Serious: No
  Sender: FDA-Public Use
  Company Number: None

PATIENT
  Age: 39 Year
  Sex: Female
  Weight: 52.2 kg

DRUGS (12)
  1. XANAX [Concomitant]
     Active Substance: ALPRAZOLAM
  2. MAGNESIUM [Concomitant]
     Active Substance: MAGNESIUM
  3. AIMOVIG [Suspect]
     Active Substance: ERENUMAB-AOOE
     Indication: MIGRAINE
  4. ZOFRAN [Concomitant]
     Active Substance: ONDANSETRON HYDROCHLORIDE
  5. VITAMIN D [Concomitant]
     Active Substance: VITAMIN D NOS
  6. BOTOX [Concomitant]
     Active Substance: ONABOTULINUMTOXINA
  7. MULTIVITAMIN [Concomitant]
     Active Substance: VITAMINS
  8. NATURE-THROID [Concomitant]
     Active Substance: THYROID, PORCINE
  9. ZOMIG [Concomitant]
     Active Substance: ZOLMITRIPTAN
  10. FISH OIL [Concomitant]
     Active Substance: FISH OIL
  11. ALEVE [Concomitant]
     Active Substance: NAPROXEN SODIUM
  12. ADVIL [Concomitant]
     Active Substance: IBUPROFEN

REACTIONS (2)
  - Depression [None]
  - Alopecia [None]
